FAERS Safety Report 18479218 (Version 1)
Quarter: 2020Q4

REPORT INFORMATION
  Report Type: Spontaneous
  Country: GB (occurrence: GB)
  Receive Date: 20201109
  Receipt Date: 20201109
  Transmission Date: 20210114
  Serious: Yes (Hospitalization)
  Sender: FDA-Public Use
  Company Number: GB-TEVA-2020-GB-1845382

PATIENT
  Age: 85 Year
  Sex: Female
  Weight: 62 kg

DRUGS (11)
  1. FOSTAIR [Concomitant]
     Active Substance: BECLOMETHASONE\FORMOTEROL
     Indication: ASTHMA
     Dosage: 4 DF
     Dates: start: 20200430
  2. WARFARIN SODIUM. [Concomitant]
     Active Substance: WARFARIN SODIUM
     Dosage: TAKE DAILY IN ACCORDANCE WITH THE YELLOW BOOK
     Dates: start: 20200430
  3. VALSARTAN. [Concomitant]
     Active Substance: VALSARTAN
     Dosage: 2 DF
     Dates: start: 20200430, end: 20200818
  4. OMEPRAZOLE. [Concomitant]
     Active Substance: OMEPRAZOLE
     Dosage: 1 DF
     Dates: start: 20200430
  5. SALBUTAMOL [Concomitant]
     Active Substance: ALBUTEROL
     Dosage: AS NEEDED,2 DF
     Route: 055
     Dates: start: 20200430
  6. LOSARTAN. [Suspect]
     Active Substance: LOSARTAN
     Dosage: 100 MG
     Dates: start: 20200826
  7. LOSARTAN. [Suspect]
     Active Substance: LOSARTAN
     Dosage: 1 DF
     Dates: start: 20200818, end: 20200903
  8. ATENOLOL. [Concomitant]
     Active Substance: ATENOLOL
     Dosage: 1 DF
     Dates: start: 20200430
  9. LERCANIDIPINE HYDROCHLORIDE [Concomitant]
     Active Substance: LERCANIDIPINE HYDROCHLORIDE
     Dosage: 1 DF
     Dates: start: 20200903
  10. SIMVASTATIN. [Concomitant]
     Active Substance: SIMVASTATIN
     Dosage: 1 DF
     Dates: start: 20200430
  11. LEVOTHYROXINE. [Concomitant]
     Active Substance: LEVOTHYROXINE
     Dosage: ON ALTERNATE MOR , 1DF
     Dates: start: 20200430

REACTIONS (2)
  - Hypersensitivity [Recovered/Resolved]
  - Headache [Unknown]

NARRATIVE: CASE EVENT DATE: 20201007
